FAERS Safety Report 23320436 (Version 1)
Quarter: 2023Q4

REPORT INFORMATION
  Report Type: Spontaneous
  Country: CA (occurrence: CA)
  Receive Date: 20231220
  Receipt Date: 20231220
  Transmission Date: 20240110
  Serious: Yes (Other)
  Sender: FDA-Public Use
  Company Number: CA-HIKMA PHARMACEUTICALS USA INC.-CA-H14001-23-68027

PATIENT
  Age: 62 Year
  Sex: Male

DRUGS (12)
  1. ACETAMINOPHEN [Suspect]
     Active Substance: ACETAMINOPHEN
     Indication: Premedication
     Dosage: UNKNOWN
     Route: 065
  2. ANAKINRA [Suspect]
     Active Substance: ANAKINRA
     Indication: Premedication
     Dosage: UNKNOWN
     Route: 065
  3. CETIRIZINE HYDROCHLORIDE [Suspect]
     Active Substance: CETIRIZINE HYDROCHLORIDE
     Indication: Premedication
     Dosage: UNKNOWN
     Route: 065
  4. DEXAMETHASONE [Suspect]
     Active Substance: DEXAMETHASONE
     Indication: Premedication
     Dosage: UNKNOWN
     Route: 065
  5. FAMOTIDINE [Suspect]
     Active Substance: FAMOTIDINE
     Indication: Premedication
     Dosage: UNKNOWN
     Route: 065
  6. FLUOROURACIL [Suspect]
     Active Substance: FLUOROURACIL
     Indication: Colorectal cancer stage III
     Dosage: UNKNOWN
     Route: 065
  7. LEUCOVORIN [Suspect]
     Active Substance: LEUCOVORIN\LEUCOVORIN CALCIUM
     Indication: Colorectal cancer stage III
     Dosage: UNKNOWN
     Route: 065
  8. IBUPROFEN [Suspect]
     Active Substance: IBUPROFEN
     Indication: Premedication
     Dosage: UNKNOWN
     Route: 065
  9. MONTELUKAST [Suspect]
     Active Substance: MONTELUKAST SODIUM
     Indication: Premedication
     Dosage: UNKNOWN
     Route: 065
  10. ONDANSETRON [Suspect]
     Active Substance: ONDANSETRON
     Indication: Premedication
     Dosage: UNKNOWN
     Route: 065
  11. OXALIPLATIN [Suspect]
     Active Substance: OXALIPLATIN
     Indication: Colorectal cancer stage III
     Dosage: UNKNOWN
     Route: 065
  12. SODIUM CHLORIDE [Suspect]
     Active Substance: SODIUM CHLORIDE
     Indication: Premedication
     Dosage: UNKNOWN
     Route: 065

REACTIONS (5)
  - Alpha tumour necrosis factor increased [Recovered/Resolved]
  - Cytokine release syndrome [Recovered/Resolved]
  - Interleukin level increased [Recovered/Resolved]
  - Monocyte chemotactic protein-1 increased [Recovered/Resolved]
  - Off label use [Recovered/Resolved]
